FAERS Safety Report 14183598 (Version 1)
Quarter: 2017Q4

REPORT INFORMATION
  Report Type: Spontaneous
  Country: GB (occurrence: GB)
  Receive Date: 20171113
  Receipt Date: 20171113
  Transmission Date: 20180321
  Serious: Yes (Disabling, Congenital Anomaly)
  Sender: FDA-Public Use
  Company Number: GB-TEVA-823113ACC

PATIENT

DRUGS (1)
  1. TRAMADOL. [Suspect]
     Active Substance: TRAMADOL
     Indication: SYMPHYSIOLYSIS
     Route: 064

REACTIONS (4)
  - Abnormal behaviour [Not Recovered/Not Resolved]
  - Dysmorphism [Not Recovered/Not Resolved]
  - Body height below normal [Not Recovered/Not Resolved]
  - Skin depigmentation [Not Recovered/Not Resolved]
